FAERS Safety Report 6659913-2 (Version None)
Quarter: 2010Q1

REPORT INFORMATION
  Report Type: 
  Country: None (occurrence: None)
  Receive Date: 20100330
  Receipt Date: 20100330
  Transmission Date: 20100710
  Serious: No
  Sender: FDA-Public Use
  Company Number: None

PATIENT
  Age: 16 Year
  Sex: Female
  Weight: 58.9676 kg

DRUGS (1)
  1. LAMICTAL [Suspect]
     Indication: AMNESIA
     Dosage: 25MG 3 IN AM 4 AT BEDTI
     Dates: start: 20090601, end: 20100330

REACTIONS (3)
  - AMNESIA [None]
  - BRAIN INJURY [None]
  - EDUCATIONAL PROBLEM [None]
